FAERS Safety Report 22046092 (Version 1)
Quarter: 2023Q1

REPORT INFORMATION
  Report Type: Spontaneous
  Country: US (occurrence: None)
  Receive Date: 20230228
  Receipt Date: 20230228
  Transmission Date: 20230418
  Serious: Yes (Hospitalization)
  Sender: FDA-Public Use
  Company Number: None

PATIENT
  Age: 72 Year
  Sex: Female

DRUGS (16)
  1. HUMIRA [Suspect]
     Active Substance: ADALIMUMAB
     Indication: Eczema
     Dosage: FREQUENCY : EVERY OTHER WEEK;?
     Route: 058
     Dates: start: 20220222, end: 20230221
  2. ASPIRIN [Concomitant]
     Active Substance: ASPIRIN
  3. GLUOS/CHOND COMPLEX [Concomitant]
  4. IBUPROFEN [Concomitant]
     Active Substance: IBUPROFEN
  5. OMEGA-3 ACIDS [Concomitant]
     Active Substance: OMEGA-3 FATTY ACIDS
  6. ALLOPURINOL [Concomitant]
     Active Substance: ALLOPURINOL
  7. BENICAR [Concomitant]
     Active Substance: OLMESARTAN MEDOXOMIL
  8. BUMEX [Concomitant]
     Active Substance: BUMETANIDE
  9. CALCIUM [Concomitant]
     Active Substance: CALCIUM
  10. CLOBETASOL [Concomitant]
     Active Substance: CLOBETASOL
  11. FLUOCINONIDE [Concomitant]
     Active Substance: FLUOCINONIDE
  12. EMOLLNT FOAM [Concomitant]
  13. POTASSIUM CHLORIDE [Concomitant]
     Active Substance: POTASSIUM CHLORIDE
  14. VITAMINS [Concomitant]
     Active Substance: VITAMINS
  15. HUMIRA [Suspect]
     Active Substance: ADALIMUMAB
     Indication: Psoriasis
  16. HUMIRA [Suspect]
     Active Substance: ADALIMUMAB
     Indication: Psoriatic arthropathy

REACTIONS (3)
  - Infection [None]
  - Therapy interrupted [None]
  - Therapy cessation [None]

NARRATIVE: CASE EVENT DATE: 20230221
